FAERS Safety Report 25157981 (Version 2)
Quarter: 2025Q2

REPORT INFORMATION
  Report Type: Report from Study
  Country: US (occurrence: US)
  Receive Date: 20250404
  Receipt Date: 20250416
  Transmission Date: 20250717
  Serious: Yes (Hospitalization)
  Sender: ABBVIE
  Company Number: US-ABBVIE-6205262

PATIENT
  Age: 77 Year
  Sex: Male
  Weight: 82 kg

DRUGS (10)
  1. VENCLEXTA [Suspect]
     Active Substance: VENETOCLAX
     Indication: Hodgkin^s disease nodular sclerosis
     Route: 048
     Dates: start: 20250117
  2. LOSARTAN [Concomitant]
     Active Substance: LOSARTAN
     Indication: Blood pressure measurement
     Route: 048
  3. METOPROLOL [Concomitant]
     Active Substance: METOPROLOL
     Indication: Coronary arterial stent insertion
     Route: 048
     Dates: start: 202301
  4. TAMSULOSIN [Concomitant]
     Active Substance: TAMSULOSIN
     Indication: Muscle relaxant therapy
     Route: 048
  5. ACYCLOVIR [Concomitant]
     Active Substance: ACYCLOVIR
     Indication: Antiviral treatment
     Route: 048
  6. VORICONAZOLE [Concomitant]
     Active Substance: VORICONAZOLE
     Indication: Antifungal treatment
     Route: 048
     Dates: end: 20250311
  7. LEVOFLOXACIN [Concomitant]
     Active Substance: LEVOFLOXACIN
     Indication: Product used for unknown indication
     Route: 048
     Dates: end: 20250311
  8. LANTUS SOLOSTAR [Concomitant]
     Active Substance: INSULIN GLARGINE
     Indication: Type 2 diabetes mellitus
     Dosage: DOSE: 18 UNITS, BETWEEN 9 PM AND 10 PM, DOSE FORM: PEN
     Route: 058
     Dates: start: 2023
  9. LANTUS SOLOSTAR [Concomitant]
     Active Substance: INSULIN GLARGINE
     Indication: Type 2 diabetes mellitus
     Dosage: DOSE: 5 UNITS, BETWEEN 9 PM AND 10 PM, DOSE FORM: PEN
     Route: 058
     Dates: start: 2023
  10. LANTUS SOLOSTAR [Concomitant]
     Active Substance: INSULIN GLARGINE
     Indication: Type 2 diabetes mellitus
     Dosage: DOSE: 20 UNITS, BETWEEN 9 PM AND 10 PM, DOSE FORM: PEN
     Route: 058
     Dates: start: 2023

REACTIONS (12)
  - Leukaemia [Unknown]
  - Off label use [Not Recovered/Not Resolved]
  - White blood cell count abnormal [Unknown]
  - Urinary tract infection [Not Recovered/Not Resolved]
  - Blood calcium abnormal [Unknown]
  - Haemoglobin abnormal [Unknown]
  - Neutrophil count abnormal [Unknown]
  - Dysstasia [Unknown]
  - Off label use [Not Recovered/Not Resolved]
  - Middle insomnia [Recovered/Resolved]
  - Cardiac failure [Not Recovered/Not Resolved]
  - Pollakiuria [Unknown]

NARRATIVE: CASE EVENT DATE: 20250101
